FAERS Safety Report 11878751 (Version 1)
Quarter: 2015Q4

REPORT INFORMATION
  Report Type: Spontaneous
  Country: GB (occurrence: GB)
  Receive Date: 20151230
  Receipt Date: 20151230
  Transmission Date: 20160305
  Serious: Yes (Hospitalization)
  Sender: FDA-Public Use
  Company Number: GB-ASTRAZENECA-2015SF29716

PATIENT
  Age: 61 Year
  Sex: Male
  Weight: 62 kg

DRUGS (2)
  1. SAXAGLIPTIN [Suspect]
     Active Substance: SAXAGLIPTIN
     Indication: DIABETES MELLITUS
     Route: 048
     Dates: end: 20151211
  2. EXENATIDE [Suspect]
     Active Substance: EXENATIDE
     Indication: DIABETES MELLITUS
     Route: 058
     Dates: start: 20150626, end: 20151211

REACTIONS (3)
  - Cough [Recovered/Resolved]
  - Contraindicated drug administered [Unknown]
  - Pancreatitis acute [Unknown]
